FAERS Safety Report 5754667-6 (Version None)
Quarter: 2008Q2

REPORT INFORMATION
  Report Type: 
  Country: None (occurrence: None)
  Receive Date: 20080527
  Receipt Date: 20080507
  Transmission Date: 20081010
  Serious: Yes (Death, Hospitalization)
  Sender: FDA-Public Use
  Company Number: 2008AL003802

PATIENT
  Age: 56 Year
  Sex: Male
  Weight: 68.0396 kg

DRUGS (7)
  1. DIGOXIN [Suspect]
     Indication: ARRHYTHMIA
     Dosage: 0.25MG DAILY PO; 3 YEARS AGO
     Route: 048
  2. FUROSEMIDE [Concomitant]
  3. COREG [Concomitant]
  4. LEXAPRO [Concomitant]
  5. ENALAPRIL MALEATE [Concomitant]
  6. TRAZODONE HCL [Concomitant]
  7. POTASSIUM CHLORIDE [Concomitant]

REACTIONS (5)
  - BRADYCARDIA [None]
  - DIZZINESS [None]
  - NAUSEA [None]
  - RENAL DISORDER [None]
  - RENAL FAILURE [None]
